FAERS Safety Report 12953950 (Version 1)
Quarter: 2016Q4

REPORT INFORMATION
  Report Type: Spontaneous
  Country: FR (occurrence: FR)
  Receive Date: 20161118
  Receipt Date: 20161118
  Transmission Date: 20170207
  Serious: Yes (Death, Hospitalization)
  Sender: FDA-Public Use
  Company Number: FR-ACCORD-045613

PATIENT
  Age: 66 Year
  Sex: Female

DRUGS (2)
  1. CARBOPLATINE KABI [Suspect]
     Active Substance: CARBOPLATIN
     Indication: OVARIAN CANCER STAGE III
     Dosage: 10 MG/ML
     Route: 042
     Dates: start: 20160923
  2. GEMCITABINE INTAS [Suspect]
     Active Substance: GEMCITABINE HYDROCHLORIDE
     Indication: OVARIAN CANCER STAGE III
     Dosage: 100 MG/ML, SOLUTION A DILUER POUR PERFUSION
     Route: 042
     Dates: start: 20160923

REACTIONS (8)
  - Disseminated intravascular coagulation [Unknown]
  - Hypovolaemic shock [Fatal]
  - Respiratory failure [Unknown]
  - Hepatic failure [Unknown]
  - Acute kidney injury [Unknown]
  - Subileus [Unknown]
  - Septic shock [Fatal]
  - Febrile bone marrow aplasia [Fatal]

NARRATIVE: CASE EVENT DATE: 20160929
